FAERS Safety Report 16174505 (Version 2)
Quarter: 2019Q2

REPORT INFORMATION
  Report Type: Spontaneous
  Country: FR (occurrence: FR)
  Receive Date: 20190409
  Receipt Date: 20190502
  Transmission Date: 20190711
  Serious: Yes (Hospitalization)
  Sender: FDA-Public Use
  Company Number: FR-PFIZER INC-2019148166

PATIENT
  Age: 59 Year
  Sex: Male
  Weight: 91 kg

DRUGS (4)
  1. CARBOPLATIN. [Suspect]
     Active Substance: CARBOPLATIN
     Indication: T-CELL LYMPHOMA RECURRENT
     Dosage: UNK
     Route: 042
     Dates: start: 20190228, end: 20190228
  2. IFOSFAMIDE. [Suspect]
     Active Substance: IFOSFAMIDE
     Indication: T-CELL LYMPHOMA RECURRENT
     Dosage: 5000 MG/M2, UNK
     Route: 042
     Dates: start: 20190228, end: 20190228
  3. ADCETRIS [Suspect]
     Active Substance: BRENTUXIMAB VEDOTIN
     Indication: T-CELL LYMPHOMA RECURRENT
     Dosage: 1.8 MG/KG, UNK
     Route: 042
     Dates: start: 20190301, end: 20190301
  4. ETOPOSIDE. [Suspect]
     Active Substance: ETOPOSIDE
     Indication: T-CELL LYMPHOMA RECURRENT
     Dosage: 100 MG/M2, UNK
     Route: 042
     Dates: start: 20190227, end: 20190301

REACTIONS (9)
  - Localised oedema [Not Recovered/Not Resolved]
  - Skin hyperpigmentation [Not Recovered/Not Resolved]
  - Toxic skin eruption [Unknown]
  - Pruritus [Not Recovered/Not Resolved]
  - Type IV hypersensitivity reaction [Recovering/Resolving]
  - Purpura [Not Recovered/Not Resolved]
  - C-reactive protein increased [Not Recovered/Not Resolved]
  - Rash [Recovering/Resolving]
  - Erythema [Not Recovered/Not Resolved]

NARRATIVE: CASE EVENT DATE: 20190310
